FAERS Safety Report 11802404 (Version 1)
Quarter: 2015Q4

REPORT INFORMATION
  Report Type: Spontaneous
  Country: CA (occurrence: CA)
  Receive Date: 20151204
  Receipt Date: 20151204
  Transmission Date: 20160305
  Serious: No
  Sender: FDA-Public Use
  Company Number: CA-APOTEX-2014AP006255

PATIENT

DRUGS (2)
  1. APO-FENTANYL MATRIX [Suspect]
     Active Substance: FENTANYL
     Indication: ANALGESIC THERAPY
     Route: 062
  2. HYDROMORPHONE [Concomitant]
     Active Substance: HYDROMORPHONE
     Indication: BREAKTHROUGH PAIN

REACTIONS (5)
  - Prescribed underdose [Recovered/Resolved]
  - Product substitution issue [Recovered/Resolved]
  - Condition aggravated [Recovered/Resolved]
  - Application site rash [Recovered/Resolved]
  - Product adhesion issue [Recovered/Resolved]
